FAERS Safety Report 17342807 (Version 2)
Quarter: 2021Q1

REPORT INFORMATION
  Report Type: Spontaneous
  Country: US (occurrence: US)
  Receive Date: 20200129
  Receipt Date: 20210203
  Transmission Date: 20210419
  Serious: No
  Sender: FDA-Public Use
  Company Number: US-ALLERGAN-1909373US

PATIENT
  Sex: Female
  Weight: 68.04 kg

DRUGS (3)
  1. BOTOX [Suspect]
     Active Substance: ONABOTULINUMTOXINA
     Indication: MIGRAINE
     Dosage: 200 UNITS, SINGLE
     Route: 030
  2. RELPAX [Concomitant]
     Active Substance: ELETRIPTAN HYDROBROMIDE
     Indication: MIGRAINE
     Dosage: ACTUAL: ONE 40 MG TABLET BY ORAL ROUTE EVERYDAY AT MIGRAINE ONSET REPEATING AFTER TWO HOURS IF NEEDE
     Route: 048
  3. BOTOX [Suspect]
     Active Substance: ONABOTULINUMTOXINA
     Dosage: UNK UNK, SINGLE
     Route: 030

REACTIONS (4)
  - Off label use [Unknown]
  - Migraine [Unknown]
  - Therapeutic response decreased [Unknown]
  - Injection site pain [Unknown]
